FAERS Safety Report 6327193-3 (Version None)
Quarter: 2009Q3

REPORT INFORMATION
  Report Type: 
  Country: None (occurrence: None)
  Receive Date: 20090818
  Receipt Date: 20090604
  Transmission Date: 20100115
  Serious: No
  Sender: FDA-Public Use
  Company Number: WAES 0906USA00882

PATIENT
  Age: 80 Year
  Sex: Female
  Weight: 70.7611 kg

DRUGS (23)
  1. JANUVIA [Suspect]
     Indication: TYPE 2 DIABETES MELLITUS
     Dosage: 100 MG/DAILY/PO
     Route: 048
     Dates: start: 20080822, end: 20090324
  2. CARAFATE [Concomitant]
  3. COMBIVENT [Concomitant]
  4. ENABLEX [Concomitant]
  5. FOSAMAX [Concomitant]
  6. LIPITOR [Concomitant]
  7. MULTIVITAMIN [Concomitant]
  8. SENOKOT [Concomitant]
  9. TANDEM PLUS [Concomitant]
  10. TUSSIN EXPECTORANT [Concomitant]
  11. ALLERGENIC EXTRACT [Concomitant]
  12. ASCORBIC ACID [Concomitant]
  13. ATENOLOL [Concomitant]
  14. CALCIUM [Concomitant]
  15. CIPROFLAXACIN [Concomitant]
  16. DIGOXIN [Concomitant]
  17. FUROSEMIDE [Concomitant]
  18. MIDODRINE HYDROCHLORIDE [Concomitant]
  19. NYSTATIN [Concomitant]
  20. POTASSIUM CHLORIDE [Concomitant]
  21. PREDNISONE TAB [Concomitant]
  22. VITAMIN D [Concomitant]
  23. WARFARIN SODIUM [Concomitant]

REACTIONS (14)
  - BLISTER [None]
  - CERUMEN IMPACTION [None]
  - FALL [None]
  - FAT NECROSIS [None]
  - HYPERKERATOSIS [None]
  - HYPOGLYCAEMIA [None]
  - SKIN INFECTION [None]
  - SKIN LACERATION [None]
  - SKIN LESION [None]
  - STAPHYLOCOCCAL INFECTION [None]
  - SUBCUTANEOUS ABSCESS [None]
  - SUBCUTANEOUS NODULE [None]
  - TEMPORAL ARTERITIS [None]
  - URINARY TRACT INFECTION [None]
